FAERS Safety Report 8899270 (Version 3)
Quarter: 2014Q1

REPORT INFORMATION
  Report Type: Report from Study
  Country: CA (occurrence: CA)
  Receive Date: 20121109
  Receipt Date: 20140106
  Transmission Date: 20141002
  Serious: Yes (Hospitalization, Other)
  Sender: FDA-Public Use
  Company Number: CA-BRISTOL-MYERS SQUIBB COMPANY-17093444

PATIENT
  Age: 45 Year
  Sex: Male

DRUGS (17)
  1. ORENCIA [Suspect]
     Indication: RHEUMATOID ARTHRITIS
     Dosage: NO OF INF-4.LAST INF-29OCT12?2AUG,15AUG,30AUG12,27SEP12,29OCT12
     Route: 042
     Dates: start: 20120802, end: 20121029
  2. ATORVASTATIN [Concomitant]
  3. CALCIUM CARBONATE [Concomitant]
  4. CITALOPRAM [Concomitant]
  5. FOLIC ACID [Concomitant]
  6. GABAPENTIN [Concomitant]
  7. HYDROCORTISONE [Concomitant]
  8. PREDNISONE [Concomitant]
  9. METOPROLOL [Concomitant]
  10. PANTOPRAZOLE [Concomitant]
  11. QUETIAPINE FUMARATE [Concomitant]
  12. RAMIPRIL [Concomitant]
  13. HUMALOG [Concomitant]
  14. LEVEMIR [Concomitant]
  15. CALCIUM [Concomitant]
  16. VITAMIN D [Concomitant]
  17. RISEDRONATE SODIUM [Concomitant]

REACTIONS (7)
  - Impaired gastric emptying [Unknown]
  - Chills [Unknown]
  - Increased upper airway secretion [Unknown]
  - Abdominal pain upper [Unknown]
  - Disorientation [Unknown]
  - Diarrhoea [Unknown]
  - Drug ineffective [Not Recovered/Not Resolved]
